FAERS Safety Report 24329964 (Version 2)
Quarter: 2024Q4

REPORT INFORMATION
  Report Type: Spontaneous
  Country: US (occurrence: US)
  Receive Date: 20240917
  Receipt Date: 20241007
  Transmission Date: 20250115
  Serious: No
  Sender: ROCHE
  Company Number: US-ROCHE-10000080127

PATIENT
  Sex: Male
  Weight: 48.08 kg

DRUGS (1)
  1. NUTROPIN [Suspect]
     Active Substance: SOMATROPIN
     Indication: Growth hormone deficiency
     Route: 065
     Dates: start: 2023

REACTIONS (5)
  - Product complaint [Unknown]
  - No adverse event [Unknown]
  - Product complaint [Unknown]
  - Product dose omission issue [Unknown]
  - Device use error [Unknown]
